FAERS Safety Report 8081644-5 (Version None)
Quarter: 2012Q1

REPORT INFORMATION
  Report Type: 
  Country: None (occurrence: None)
  Receive Date: 20120130
  Receipt Date: 20120123
  Transmission Date: 20120608
  Serious: Yes (Hospitalization)
  Sender: FDA-Public Use
  Company Number: IE-PFIZER INC-2011217981

PATIENT
  Age: 57 Year
  Sex: Female
  Weight: 57 kg

DRUGS (3)
  1. SUTENT [Suspect]
     Indication: VULVAL CANCER METASTATIC
     Dosage: 35.5 MG, 1X/DAY 4 WKS ON 2WKS OFF
     Dates: start: 20110615
  2. METHADONE HCL [Interacting]
     Indication: PAIN
     Dosage: 6 MG, 2X/DAY
     Route: 048
     Dates: start: 20101101
  3. METHADONE HCL [Interacting]
     Indication: DYSPNOEA

REACTIONS (2)
  - DRUG INTERACTION [None]
  - TOXICITY TO VARIOUS AGENTS [None]
